FAERS Safety Report 8548986-8 (Version None)
Quarter: 2012Q3

REPORT INFORMATION
  Report Type: 
  Country: None (occurrence: None)
  Receive Date: 20120730
  Receipt Date: 20120725
  Transmission Date: 20120928
  Serious: Yes (Death, Other)
  Sender: FDA-Public Use
  Company Number: FR-ASTELLAS-2011US008523

PATIENT
  Sex: Female

DRUGS (4)
  1. DESLORATADINE [Concomitant]
     Indication: PRODUCT USED FOR UNKNOWN INDICATION
     Dosage: 14 DF, UID/QD
     Route: 048
     Dates: start: 20080710, end: 20110418
  2. ULTRA LEVURE [Concomitant]
     Indication: PRODUCT USED FOR UNKNOWN INDICATION
     Dosage: 50 MG, TID
     Route: 048
     Dates: start: 20080710, end: 20110418
  3. ERLOTINIB HYDROCHLORIDE [Suspect]
     Indication: METASTASES TO LUNG
     Dosage: 150 MG, UID/QD
     Route: 048
     Dates: start: 20080710, end: 20110418
  4. OXYCONTIN [Concomitant]
     Indication: PRODUCT USED FOR UNKNOWN INDICATION
     Dosage: 20 MG, BID
     Route: 048
     Dates: start: 20080710, end: 20110410

REACTIONS (2)
  - GENERAL PHYSICAL HEALTH DETERIORATION [None]
  - NEOPLASM MALIGNANT [None]
